FAERS Safety Report 10018887 (Version 1)
Quarter: 2014Q1

REPORT INFORMATION
  Report Type: Spontaneous
  Country: US (occurrence: US)
  Receive Date: 20140318
  Receipt Date: 20140318
  Transmission Date: 20141002
  Serious: No
  Sender: FDA-Public Use
  Company Number: US-009507513-1403USA007879

PATIENT
  Age: 71 Year
  Sex: Female
  Weight: 70.3 kg

DRUGS (2)
  1. MIRALAX [Suspect]
     Indication: CONSTIPATION PROPHYLAXIS
     Dosage: 17 G, QD
     Route: 048
     Dates: start: 20131215
  2. ASACOL [Concomitant]
     Indication: COLITIS
     Dosage: UNK, UNKNOWN

REACTIONS (3)
  - Haematochezia [Unknown]
  - Incorrect drug administration duration [Unknown]
  - Product physical issue [Unknown]
